FAERS Safety Report 4862716-2 (Version None)
Quarter: 2005Q4

REPORT INFORMATION
  Report Type: 
  Country: None (occurrence: None)
  Receive Date: 20051221
  Receipt Date: 20051214
  Transmission Date: 20060501
  Serious: Yes (Disabling)
  Sender: FDA-Public Use
  Company Number: US-MERCK-0512USA02424

PATIENT
  Sex: Male

DRUGS (1)
  1. VIOXX [Suspect]
     Indication: INJURY
     Route: 048
     Dates: start: 20030701

REACTIONS (2)
  - CARDIOVASCULAR DISORDER [None]
  - CEREBROVASCULAR ACCIDENT [None]
